FAERS Safety Report 7892216-7 (Version None)
Quarter: 2011Q4

REPORT INFORMATION
  Report Type: 
  Country: None (occurrence: None)
  Receive Date: 20111104
  Receipt Date: 20111020
  Transmission Date: 20120403
  Serious: Yes (Other)
  Sender: FDA-Public Use
  Company Number: NL-AMGEN-NLDSP2011055054

PATIENT
  Age: 53 Year
  Sex: Female

DRUGS (7)
  1. PREDNISOLONE [Concomitant]
     Dosage: 5 MG, 2X/DAY
  2. ENBREL [Suspect]
     Dosage: UNK
     Dates: start: 20110617, end: 20110804
  3. PLAQUENIL [Concomitant]
     Dosage: 200 MG, 2X/DAY
  4. NEXIUM [Concomitant]
     Dosage: 40 MG, UNK
  5. ENBREL [Suspect]
     Indication: RHEUMATOID ARTHRITIS
     Dosage: 50 MG, UNK
     Dates: start: 20110218
  6. DICLOFENAC SODIUM [Concomitant]
     Dosage: 25 MG, UNK
  7. BISOPROLOL [Concomitant]
     Dosage: 2.5 MG, UNK

REACTIONS (1)
  - HYDROPNEUMOTHORAX [None]
